FAERS Safety Report 8256132-3 (Version None)
Quarter: 2012Q2

REPORT INFORMATION
  Report Type: 
  Country: None (occurrence: None)
  Receive Date: 20120403
  Receipt Date: 20120328
  Transmission Date: 20120825
  Serious: No
  Sender: FDA-Public Use
  Company Number: US-BAYER-2012-031837

PATIENT
  Age: 95 Year
  Sex: Female
  Weight: 54 kg

DRUGS (7)
  1. METAMUCIL-2 [Concomitant]
  2. RECLAST [Concomitant]
  3. UNKNOWN [Concomitant]
  4. ALEVE (CAPLET) [Suspect]
     Indication: PAIN
     Dosage: UNK
     Route: 048
     Dates: start: 20120327, end: 20120327
  5. MIRALAX [Concomitant]
  6. ASPIRIN [Concomitant]
     Dosage: 85 MG, UNK
  7. CALCIUM CARBONATE [Concomitant]

REACTIONS (2)
  - THROAT IRRITATION [None]
  - ORAL DISCOMFORT [None]
